FAERS Safety Report 4993955-8 (Version None)
Quarter: 2006Q2

REPORT INFORMATION
  Report Type: 
  Country: None (occurrence: None)
  Receive Date: 20060503
  Receipt Date: 20060503
  Transmission Date: 20061013
  Serious: Yes (Hospitalization)
  Sender: FDA-Public Use
  Company Number: None

PATIENT
  Age: 65 Year
  Sex: Male
  Weight: 71 kg

DRUGS (10)
  1. TRAMADOL HCL [Suspect]
     Indication: BACK PAIN
     Dosage: 1 TO 2 TABLETS TID PRN PO
     Route: 048
     Dates: start: 20051215, end: 20060208
  2. ALLOPURINOL [Concomitant]
  3. COLCHICINE [Concomitant]
  4. DIAZEPAM [Concomitant]
  5. LAMOTRIGINE [Concomitant]
  6. LIDOCAINE [Concomitant]
  7. SERTRALINE HCL [Concomitant]
  8. SIMVASTATIN [Concomitant]
  9. TRAZODONE HCL [Concomitant]
  10. VARDENAFIL HCL [Concomitant]

REACTIONS (1)
  - TREMOR [None]
